FAERS Safety Report 6511923-1 (Version None)
Quarter: 2009Q4

REPORT INFORMATION
  Report Type: 
  Country: None (occurrence: None)
  Receive Date: 20091222
  Receipt Date: 20090804
  Transmission Date: 20100525
  Serious: Yes (Other)
  Sender: FDA-Public Use
  Company Number: US-ASTRAZENECA-2009UW17865

PATIENT
  Age: 16773 Day
  Sex: Female
  Weight: 70.3 kg

DRUGS (4)
  1. CRESTOR [Suspect]
     Indication: BLOOD CHOLESTEROL
     Dosage: 5 MG OR 10 MG DAILY
     Route: 048
     Dates: start: 20090621, end: 20090625
  2. SINGULAIR [Concomitant]
     Indication: ASTHMA
     Route: 048
  3. ADVAIR DISKUS 100/50 [Concomitant]
     Dosage: 100 / 50 TWICE A DAY
  4. RANITIDINE [Concomitant]

REACTIONS (3)
  - ANGIOEDEMA [None]
  - GENITAL SWELLING [None]
  - WRONG TECHNIQUE IN DRUG USAGE PROCESS [None]
